FAERS Safety Report 17053536 (Version 1)
Quarter: 2019Q4

REPORT INFORMATION
  Report Type: Spontaneous
  Country: CA (occurrence: CA)
  Receive Date: 20191120
  Receipt Date: 20191120
  Transmission Date: 20200122
  Serious: Yes (Other)
  Sender: FDA-Public Use
  Company Number: CA-PFIZER INC-2019498467

PATIENT
  Age: 46 Year
  Sex: Female

DRUGS (7)
  1. AMLODIPINE [Concomitant]
     Active Substance: AMLODIPINE BESYLATE
     Dosage: UNK
  2. TENOFOVIR [Concomitant]
     Active Substance: TENOFOVIR
     Dosage: UNK
  3. PACLITAXEL. [Suspect]
     Active Substance: PACLITAXEL
     Indication: ENDOMETRIAL CANCER
     Dosage: 350 MG, UNK
     Route: 042
  4. METFORMIN [Concomitant]
     Active Substance: METFORMIN HYDROCHLORIDE
     Dosage: UNK
  5. ROSUVASTATIN. [Concomitant]
     Active Substance: ROSUVASTATIN
     Dosage: UNK
  6. IRBESARTAN. [Concomitant]
     Active Substance: IRBESARTAN
     Dosage: UNK
  7. ASCORBIC ACID. [Concomitant]
     Active Substance: ASCORBIC ACID
     Dosage: UNK

REACTIONS (5)
  - Flushing [Recovered/Resolved]
  - Chest discomfort [Recovered/Resolved]
  - Palpitations [Recovered/Resolved]
  - Off label use [Recovered/Resolved]
  - Dizziness [Recovered/Resolved]
